FAERS Safety Report 12580113 (Version 1)
Quarter: 2016Q3

REPORT INFORMATION
  Report Type: Spontaneous
  Country: None (occurrence: US)
  Receive Date: 20160721
  Receipt Date: 20160721
  Transmission Date: 20161109
  Serious: Yes (Hospitalization)
  Sender: FDA-Public Use
  Company Number: US-RARE DISEASE THERAPEUTICS, INC.-1055368

PATIENT
  Age: 36 Year
  Sex: Male
  Weight: 102.9 kg

DRUGS (11)
  1. CYSTADANE [Suspect]
     Active Substance: BETAINE
     Route: 048
     Dates: start: 20140818
  2. LEXAPRO [Concomitant]
     Active Substance: ESCITALOPRAM OXALATE
  3. VITAMIN B-6 [Concomitant]
     Active Substance: PYRIDOXINE
  4. RISPERDAL [Concomitant]
     Active Substance: RISPERIDONE
  5. TOPAMAX [Concomitant]
     Active Substance: TOPIRAMATE
  6. FOLIC ACID. [Concomitant]
     Active Substance: FOLIC ACID
  7. CLARITIN [Concomitant]
     Active Substance: LORATADINE
  8. MULTIVITAMIN [Concomitant]
     Active Substance: VITAMINS
  9. LORAZEPAM. [Concomitant]
     Active Substance: LORAZEPAM
  10. CYSTADANE [Suspect]
     Active Substance: BETAINE
     Dates: start: 1996
  11. OLANZAPINE. [Concomitant]
     Active Substance: OLANZAPINE

REACTIONS (3)
  - Aggression [Not Recovered/Not Resolved]
  - Underdose [None]
  - Physical assault [None]

NARRATIVE: CASE EVENT DATE: 20160712
